FAERS Safety Report 10869848 (Version 1)
Quarter: 2015Q1

REPORT INFORMATION
  Report Type: Spontaneous
  Country: US (occurrence: None)
  Receive Date: 20150223
  Receipt Date: 20150223
  Transmission Date: 20150721
  Serious: Yes (Life-Threatening, Hospitalization)
  Sender: FDA-Public Use
  Company Number: NSR_01967_2015

PATIENT
  Age: 44 Year
  Sex: Female

DRUGS (3)
  1. CHLORTHALIDONE. [Suspect]
     Active Substance: CHLORTHALIDONE
     Indication: PRODUCT USED FOR UNKNOWN INDICATION
     Dosage: 2.25 G (NOT THE PRESCRIBED AMOUNT)
  2. LISINOPRIL 40 MG LUPIN PHARMACE [Suspect]
     Active Substance: LISINOPRIL
     Indication: PRODUCT USED FOR UNKNOWN INDICATION
     Dosage: DF, (NOT THE PRESCRIBED AMOUNT)
  3. ATENOLOL. [Suspect]
     Active Substance: ATENOLOL
     Indication: PRODUCT USED FOR UNKNOWN INDICATION
     Dosage: 4.5 G, (NOT THE PRESCRIVED AMOUNT)

REACTIONS (19)
  - Hypotension [None]
  - Acute respiratory distress syndrome [None]
  - Oxygen saturation decreased [None]
  - Unresponsive to stimuli [None]
  - General physical health deterioration [None]
  - Coma [None]
  - Cardiac arrest [None]
  - Continuous haemodiafiltration [None]
  - Fluid overload [None]
  - Intentional overdose [None]
  - Mental status changes [None]
  - Sinus bradycardia [None]
  - Renal failure [None]
  - Cardiac output decreased [None]
  - Exposure via ingestion [None]
  - Respiratory rate decreased [None]
  - Diastolic dysfunction [None]
  - Circulatory collapse [None]
  - Cardiotoxicity [None]
